FAERS Safety Report 7936911-X (Version None)
Quarter: 2011Q4

REPORT INFORMATION
  Report Type: 
  Country: None (occurrence: None)
  Receive Date: 20111123
  Receipt Date: 20111123
  Transmission Date: 20120403
  Serious: Yes (Life-Threatening, Hospitalization)
  Sender: FDA-Public Use
  Company Number: None

PATIENT
  Age: 69 Year
  Sex: Male
  Weight: 83.914 kg

DRUGS (1)
  1. PREVACID [Suspect]
     Indication: GASTROOESOPHAGEAL REFLUX DISEASE
     Dosage: 2 TABS/DAY; 30 MG/DAY
     Route: 048
     Dates: start: 20080808, end: 20111122

REACTIONS (4)
  - NAUSEA [None]
  - HYPOMAGNESAEMIA [None]
  - VERTIGO [None]
  - HEART RATE DECREASED [None]
